FAERS Safety Report 23694705 (Version 1)
Quarter: 2024Q2

REPORT INFORMATION
  Report Type: Spontaneous
  Country: TW (occurrence: TW)
  Receive Date: 20240402
  Receipt Date: 20240402
  Transmission Date: 20240716
  Serious: Yes (Hospitalization, Other)
  Sender: FDA-Public Use
  Company Number: TW-GlaxoSmithKline-B0338656A

PATIENT

DRUGS (3)
  1. LAMOTRIGINE [Suspect]
     Active Substance: LAMOTRIGINE
     Indication: Epilepsy
     Dosage: 100 MG, 1D
     Route: 048
  2. TOPIRAMATE [Concomitant]
     Active Substance: TOPIRAMATE
     Indication: Product used for unknown indication
     Dosage: 400 MG, 1D
     Route: 048
  3. VALPROIC ACID [Concomitant]
     Active Substance: VALPROIC ACID
     Indication: Product used for unknown indication
     Dosage: 700 MG, 1D
     Route: 048

REACTIONS (22)
  - Haemophagocytic lymphohistiocytosis [Recovered/Resolved]
  - Pancytopenia [Recovered/Resolved]
  - Serum ferritin increased [Recovered/Resolved]
  - Blood lactate dehydrogenase increased [Recovered/Resolved]
  - Blood triglycerides increased [Unknown]
  - Ocular icterus [Unknown]
  - Aspartate aminotransferase increased [Recovered/Resolved]
  - Pleural effusion [Recovered/Resolved]
  - Ascites [Recovered/Resolved]
  - Pyrexia [Recovered/Resolved]
  - Abdominal pain [Recovered/Resolved]
  - Petechiae [Unknown]
  - Mouth haemorrhage [Unknown]
  - Pruritus [Recovered/Resolved]
  - Blood cholesterol increased [Unknown]
  - Prothrombin time prolonged [Unknown]
  - Activated partial thromboplastin time prolonged [Unknown]
  - Rash [Recovered/Resolved]
  - Lethargy [Unknown]
  - Rash pruritic [Unknown]
  - Jaundice [Unknown]
  - Hypertransaminasaemia [Unknown]
